FAERS Safety Report 7047666-8 (Version None)
Quarter: 2010Q4

REPORT INFORMATION
  Report Type: 
  Country: None (occurrence: None)
  Receive Date: 20101015
  Receipt Date: 20101012
  Transmission Date: 20110411
  Serious: Yes (Hospitalization)
  Sender: FDA-Public Use
  Company Number: US-MERCK-1009USA04922

PATIENT
  Age: 88 Year
  Sex: Female

DRUGS (3)
  1. FOSAMAX [Suspect]
     Route: 048
     Dates: start: 20100922
  2. MOBIC [Suspect]
     Route: 065
  3. ASPIRIN [Suspect]
     Route: 065

REACTIONS (1)
  - GASTRIC ULCER HAEMORRHAGE [None]
